FAERS Safety Report 4304663-0 (Version None)
Quarter: 2004Q1

REPORT INFORMATION
  Report Type: 
  Country: None (occurrence: None)
  Receive Date: 20040224
  Receipt Date: 20040210
  Transmission Date: 20041129
  Serious: Yes (Other)
  Sender: FDA-Public Use
  Company Number: DEU-2003-0000697

PATIENT
  Age: 64 Year
  Sex: Female
  Weight: 95 kg

DRUGS (3)
  1. OXYCODONE HCL [Suspect]
     Indication: ARTHRALGIA
     Dosage: 40 MG, BID, ORAL
     Route: 048
     Dates: start: 20020501
  2. DORMICUM TABLET  ^ROCHE^ (MIDAZOLAM MALEATE) [Concomitant]
  3. HAEMITON (CLONIDINE HYDROCHLORIDE) [Concomitant]

REACTIONS (1)
  - DRUG WITHDRAWAL SYNDROME [None]
